FAERS Safety Report 8985819 (Version 1)
Quarter: 2012Q4

REPORT INFORMATION
  Report Type: 
  Country: US (occurrence: US)
  Receive Date: 20121226
  Receipt Date: 20121226
  Transmission Date: 20130627
  Serious: No
  Sender: FDA-Public Use
  Company Number: US-JNJFOC-20121207408

PATIENT
  Age: 33 Year
  Sex: Male

DRUGS (1)
  1. INVEGA SUSTENNA [Suspect]
     Indication: SCHIZOPHRENIA
     Route: 030
     Dates: start: 201211

REACTIONS (3)
  - Hallucination [Not Recovered/Not Resolved]
  - Injection site mass [Unknown]
  - Drug dose omission [Not Recovered/Not Resolved]
